FAERS Safety Report 17102258 (Version 2)
Quarter: 2020Q1

REPORT INFORMATION
  Report Type: Spontaneous
  Country: DE (occurrence: DE)
  Receive Date: 20191202
  Receipt Date: 20200110
  Transmission Date: 20200409
  Serious: No
  Sender: FDA-Public Use
  Company Number: DE-BIOGEN-2019BI00813496

PATIENT
  Age: 41 Year
  Sex: Female

DRUGS (7)
  1. BACLOFEN. [Concomitant]
     Active Substance: BACLOFEN
     Indication: PRODUCT USED FOR UNKNOWN INDICATION
     Route: 065
  2. TYSABRI [Suspect]
     Active Substance: NATALIZUMAB
     Route: 065
     Dates: start: 200606
  3. TYSABRI [Suspect]
     Active Substance: NATALIZUMAB
     Dosage: RECEIVED A TOTAL OF THREE TYSABRI INFUSIONS DURING THE SECOND PREGNANCY IN 2019
     Route: 042
     Dates: start: 20060713
  4. TYSABRI [Suspect]
     Active Substance: NATALIZUMAB
     Dosage: RESTARTED ON AN UNKNOWN DATE AFTER HER FIRST PREGNANCY IN 2012
     Route: 065
  5. TYSABRI [Suspect]
     Active Substance: NATALIZUMAB
     Indication: MULTIPLE SCLEROSIS
     Route: 042
     Dates: start: 2002, end: 2005
  6. DEKRISTOL [Concomitant]
     Active Substance: CHOLECALCIFEROL
     Indication: PRODUCT USED FOR UNKNOWN INDICATION
     Route: 065
  7. FAMPYRA [Suspect]
     Active Substance: DALFAMPRIDINE
     Indication: GAIT DISTURBANCE
     Route: 065

REACTIONS (1)
  - Maternal exposure during pregnancy [Recovered/Resolved]
